FAERS Safety Report 18053659 (Version 1)
Quarter: 2020Q3

REPORT INFORMATION
  Report Type: Spontaneous
  Country: US (occurrence: US)
  Receive Date: 20200721
  Receipt Date: 20200721
  Transmission Date: 20201103
  Serious: Yes (Hospitalization, Other)
  Sender: FDA-Public Use
  Company Number: None

PATIENT
  Age: 74 Year
  Sex: Male

DRUGS (16)
  1. LUPRON DEPOT [Suspect]
     Active Substance: LEUPROLIDE ACETATE
     Indication: PROSTATE CANCER
     Dosage: ?          OTHER FREQUENCY:EVERY 3 MONTHS;?
     Route: 030
     Dates: start: 20200313
  2. ALLOPURINOL. [Concomitant]
     Active Substance: ALLOPURINOL
  3. SMZ/TMP DS [Concomitant]
     Active Substance: SULFAMETHOXAZOLE\TRIMETHOPRIM
  4. TOVIAZ [Concomitant]
     Active Substance: FESOTERODINE FUMARATE
  5. BELLA/OPIUM [Concomitant]
  6. OXYCODONE AND ACETAMINOPHEN [Concomitant]
     Active Substance: ACETAMINOPHEN\OXYCODONE HYDROCHLORIDE
  7. COLCHICINE. [Concomitant]
     Active Substance: COLCHICINE
  8. ISOSORB MONO [Concomitant]
     Active Substance: ISOSORBIDE MONONITRATE
  9. CEPHALEXIN. [Concomitant]
     Active Substance: CEPHALEXIN
  10. BOTOX [Suspect]
     Active Substance: ONABOTULINUMTOXINA
     Indication: BLEPHAROSPASM
     Dosage: ?          OTHER FREQUENCY:EVERY 8?12 WEEKS;?
     Route: 030
     Dates: start: 20190525
  11. METHENAM HIP [Concomitant]
  12. TRAMADOL. [Concomitant]
     Active Substance: TRAMADOL
  13. AMOXICILLIN. [Concomitant]
     Active Substance: AMOXICILLIN
  14. CIPRO [Concomitant]
     Active Substance: CIPROFLOXACIN HYDROCHLORIDE
  15. METFORMIN [Concomitant]
     Active Substance: METFORMIN HYDROCHLORIDE
  16. CHLORTHALID [Concomitant]
     Active Substance: CHLORTHALIDONE

REACTIONS (4)
  - Post procedural complication [None]
  - Fatigue [None]
  - Haemorrhage [None]
  - Hot flush [None]

NARRATIVE: CASE EVENT DATE: 20200521
